FAERS Safety Report 9904488 (Version 2)
Quarter: 2014Q1

REPORT INFORMATION
  Report Type: Spontaneous
  Country: IT (occurrence: IT)
  Receive Date: 20140218
  Receipt Date: 20140306
  Transmission Date: 20141002
  Serious: Yes (Other)
  Sender: FDA-Public Use
  Company Number: IT-JNJFOC-20140209578

PATIENT
  Age: 62 Year
  Sex: Female

DRUGS (12)
  1. REMICADE [Suspect]
     Indication: PSORIATIC ARTHROPATHY
     Route: 042
     Dates: start: 20131211, end: 20131211
  2. REMICADE [Suspect]
     Indication: PSORIATIC ARTHROPATHY
     Dosage: DOSE: 100MG (3MG/KG, CYCLIC)
     Route: 042
     Dates: start: 20110216
  3. METHOTREXATE [Concomitant]
     Dosage: DOSE: 10MG/1.33ML
     Route: 065
  4. DELTACORTENE [Concomitant]
     Route: 048
  5. CARDIOASPIRIN [Concomitant]
     Route: 048
  6. PLAQUENIL [Concomitant]
     Route: 048
  7. PLAVIX [Concomitant]
     Route: 048
  8. TOTALIP [Concomitant]
     Route: 048
  9. TORASEMIDE [Concomitant]
     Route: 048
  10. TORASEMIDE [Concomitant]
     Route: 048
  11. ZOTON [Concomitant]
     Route: 048
  12. TRIATEC [Concomitant]
     Route: 048

REACTIONS (1)
  - Breast cancer recurrent [Not Recovered/Not Resolved]
